FAERS Safety Report 13790259 (Version 3)
Quarter: 2018Q4

REPORT INFORMATION
  Report Type: Report from Study
  Country: US (occurrence: US)
  Receive Date: 20170725
  Receipt Date: 20181001
  Transmission Date: 20190204
  Serious: Yes (Hospitalization)
  Sender: FDA-Public Use
  Company Number: US-JNJFOC-20170328602

PATIENT
  Age: 86 Year
  Sex: Male

DRUGS (23)
  1. SALBUTAMOL SULFATE [Concomitant]
     Active Substance: ALBUTEROL SULFATE
  2. METFORMIN [Concomitant]
     Active Substance: METFORMIN HYDROCHLORIDE
  3. SPIRONOLACTONE. [Concomitant]
     Active Substance: SPIRONOLACTONE
  4. INSULIN ASPART [Concomitant]
     Active Substance: INSULIN ASPART
  5. IPRATROPIUM [Concomitant]
     Active Substance: IPRATROPIUM
  6. IMDUR [Concomitant]
     Active Substance: ISOSORBIDE MONONITRATE
  7. SPIRIVA [Concomitant]
     Active Substance: TIOTROPIUM BROMIDE MONOHYDRATE
  8. IRON [Concomitant]
     Active Substance: IRON
  9. AUGMENTIN [Concomitant]
     Active Substance: AMOXICILLIN\CLAVULANATE POTASSIUM
  10. FLOMAX [Concomitant]
     Active Substance: TAMSULOSIN HYDROCHLORIDE
  11. ASPIRIN 81 [Concomitant]
     Active Substance: ASPIRIN
  12. COREG [Concomitant]
     Active Substance: CARVEDILOL
  13. FINASTERIDE. [Concomitant]
     Active Substance: FINASTERIDE
  14. NITROSTAT [Concomitant]
     Active Substance: NITROGLYCERIN
  15. RAMIPRIL. [Concomitant]
     Active Substance: RAMIPRIL
  16. ZOCOR [Concomitant]
     Active Substance: SIMVASTATIN
  17. IMBRUVICA [Suspect]
     Active Substance: IBRUTINIB
     Indication: CHRONIC LYMPHOCYTIC LEUKAEMIA
     Route: 048
     Dates: start: 20170320
  18. IMBRUVICA [Suspect]
     Active Substance: IBRUTINIB
     Indication: CHRONIC LYMPHOCYTIC LEUKAEMIA
     Route: 048
     Dates: start: 20170322, end: 2017
  19. PLAVIX [Concomitant]
     Active Substance: CLOPIDOGREL BISULFATE
  20. FLUTICASONE FUROATE W/VILANTEROL TRIFENATATE [Concomitant]
     Active Substance: FLUTICASONE FUROATE\VILANTEROL TRIFENATATE
  21. TRESIBA [Concomitant]
     Active Substance: INSULIN DEGLUDEC
  22. FERROUS FUMARATE [Concomitant]
     Active Substance: FERROUS FUMARATE
  23. TYLENOL [Concomitant]
     Active Substance: ACETAMINOPHEN

REACTIONS (11)
  - Abdominal pain upper [Unknown]
  - Pneumonia [Unknown]
  - Dysgeusia [Not Recovered/Not Resolved]
  - Incorrect dose administered [Unknown]
  - Haemoglobin decreased [Recovered/Resolved]
  - Ventricular tachyarrhythmia [Recovered/Resolved]
  - Feeling abnormal [Recovering/Resolving]
  - Lethargy [Recovering/Resolving]
  - Nausea [Not Recovered/Not Resolved]
  - Anaemia [Unknown]
  - Off label use [Unknown]

NARRATIVE: CASE EVENT DATE: 20170322
